FAERS Safety Report 5269779-3 (Version None)
Quarter: 2007Q1

REPORT INFORMATION
  Report Type: 
  Country: None (occurrence: None)
  Receive Date: 20070320
  Receipt Date: 20070312
  Transmission Date: 20070707
  Serious: Yes (Death)
  Sender: FDA-Public Use
  Company Number: US-PURDUE-USA_2007_0026694

PATIENT
  Age: 63 Year
  Sex: Male

DRUGS (2)
  1. OXYIR [Suspect]
     Indication: CANCER PAIN
     Dosage: 5 MG, PRN
     Route: 048
  2. DURAGESIC-100 [Concomitant]
     Indication: CANCER PAIN
     Route: 062

REACTIONS (1)
  - NON-SMALL CELL LUNG CANCER [None]
